FAERS Safety Report 6258343-5 (Version None)
Quarter: 2009Q3

REPORT INFORMATION
  Report Type: 
  Country: None (occurrence: None)
  Receive Date: 20090702
  Receipt Date: 20081113
  Transmission Date: 20100115
  Serious: Yes (Hospitalization)
  Sender: FDA-Public Use
  Company Number: 001#1#2008-00636

PATIENT
  Sex: Male

DRUGS (8)
  1. VIMPAT [Suspect]
     Indication: EPILEPSY
     Dosage: INCREASING DOSE ORAL, 100 MG ORAL, 150 MG, 50-0-100 ORAL, 200 MG BID ORAL
     Route: 048
     Dates: start: 20080929, end: 20081005
  2. VIMPAT [Suspect]
     Indication: EPILEPSY
     Dosage: INCREASING DOSE ORAL, 100 MG ORAL, 150 MG, 50-0-100 ORAL, 200 MG BID ORAL
     Route: 048
     Dates: start: 20081111, end: 20081113
  3. VIMPAT [Suspect]
     Indication: EPILEPSY
     Dosage: INCREASING DOSE ORAL, 100 MG ORAL, 150 MG, 50-0-100 ORAL, 200 MG BID ORAL
     Route: 048
     Dates: start: 20080829
  4. VIMPAT [Suspect]
     Indication: EPILEPSY
     Dosage: INCREASING DOSE ORAL, 100 MG ORAL, 150 MG, 50-0-100 ORAL, 200 MG BID ORAL
     Route: 048
     Dates: start: 20081006
  5. VALPROATE SODIUM [Concomitant]
  6. RISPERDAL [Concomitant]
  7. OXCARBAZEPINE [Concomitant]
  8. ORFIRIL [Concomitant]

REACTIONS (2)
  - DELIRIUM [None]
  - PSYCHOTIC DISORDER [None]
